FAERS Safety Report 20477334 (Version 3)
Quarter: 2022Q2

REPORT INFORMATION
  Report Type: Report from Study
  Country: JP (occurrence: JP)
  Receive Date: 20220215
  Receipt Date: 20220415
  Transmission Date: 20220721
  Serious: Yes (Death, Hospitalization)
  Sender: FDA-Public Use
  Company Number: JP-ABBVIE-22K-087-4279307-00

PATIENT
  Age: 73 Year
  Sex: Female
  Weight: 55.1 kg

DRUGS (6)
  1. RINVOQ [Suspect]
     Active Substance: UPADACITINIB
     Indication: Rheumatoid arthritis
     Route: 048
     Dates: start: 20210416, end: 20210611
  2. METHOTREXATE [Concomitant]
     Active Substance: METHOTREXATE
     Indication: Rheumatoid arthritis
     Dosage: OVER 8 MG/WEEK
  3. METHOTREXATE [Concomitant]
     Active Substance: METHOTREXATE
     Dosage: 6 MG/WEEK
  4. PREDNISOLONE [Concomitant]
     Active Substance: PREDNISOLONE
     Indication: Rheumatoid arthritis
  5. ALACEPRIL [Concomitant]
     Active Substance: ALACEPRIL
     Indication: Product used for unknown indication
     Route: 048
  6. BISOPROLOL FUMARATE [Concomitant]
     Active Substance: BISOPROLOL FUMARATE
     Indication: Product used for unknown indication
     Route: 048

REACTIONS (2)
  - Restrictive cardiomyopathy [Fatal]
  - Delirium [Not Recovered/Not Resolved]

NARRATIVE: CASE EVENT DATE: 20210419
